FAERS Safety Report 21728327 (Version 16)
Quarter: 2024Q1

REPORT INFORMATION
  Report Type: Spontaneous
  Country: US (occurrence: US)
  Receive Date: 20221214
  Receipt Date: 20240226
  Transmission Date: 20240410
  Serious: No
  Sender: FDA-Public Use
  Company Number: US-PFIZER INC-PV202200122880

PATIENT
  Age: 67 Year
  Sex: Female

DRUGS (3)
  1. MEKTOVI [Suspect]
     Active Substance: BINIMETINIB
     Indication: Metastatic malignant melanoma
     Dosage: TAKE 1 OF EACH A DAY/TAKE 1 TABLET (15 MG)PO QD)/TAKE 15 MG BY MOUTH ONCE DAILY
     Route: 048
  2. BRAFTOVI [Suspect]
     Active Substance: ENCORAFENIB
     Indication: Metastatic malignant melanoma
     Dosage: TAKE 1 OF EACH A DAY/TAKE 1 TABLET (15 MG) PO QD/TAKE 1 CAPSULE (75 MG) BY MOUTH DAILY AT BEDTIME
     Route: 048
  3. GABAPENTIN [Concomitant]
     Active Substance: GABAPENTIN
     Dosage: 100 MG, 2X/DAY FOR 90 DAYS

REACTIONS (4)
  - Off label use [Unknown]
  - Illness [Unknown]
  - Fatigue [Unknown]
  - Confusional state [Unknown]
